FAERS Safety Report 10084434 (Version 1)
Quarter: 2014Q2

REPORT INFORMATION
  Report Type: Report from Study
  Country: US (occurrence: US)
  Receive Date: 20140417
  Receipt Date: 20140417
  Transmission Date: 20141212
  Serious: Yes (Other)
  Sender: FDA-Public Use
  Company Number: US-ABBVIE-14P-163-1223739-00

PATIENT
  Sex: Male
  Weight: 63.56 kg

DRUGS (1)
  1. HUMIRA [Suspect]
     Indication: RHEUMATOID ARTHRITIS
     Dates: start: 2013, end: 201401

REACTIONS (5)
  - Device occlusion [Recovered/Resolved]
  - Hyperhidrosis [Recovered/Resolved]
  - Chest discomfort [Recovered/Resolved]
  - Chest discomfort [Recovered/Resolved]
  - Cardiac failure congestive [Recovered/Resolved]
